FAERS Safety Report 9682241 (Version 1)
Quarter: 2013Q4

REPORT INFORMATION
  Report Type: Spontaneous
  Country: US (occurrence: US)
  Receive Date: 20131112
  Receipt Date: 20131112
  Transmission Date: 20140711
  Serious: Yes (Hospitalization, Other)
  Sender: FDA-Public Use
  Company Number: US-009507513-1311USA003002

PATIENT
  Age: 46 Year
  Sex: Female

DRUGS (2)
  1. JANUMET [Suspect]
     Indication: TYPE 2 DIABETES MELLITUS
     Dosage: 50MG/500MG ONCE DAILY
     Route: 048
     Dates: start: 201304, end: 20131001
  2. METFORMIN [Concomitant]
     Dosage: 500 MG, QD

REACTIONS (3)
  - Pancreatitis [Recovered/Resolved]
  - Inappropriate schedule of drug administration [Unknown]
  - Underdose [Unknown]
